FAERS Safety Report 12168439 (Version 1)
Quarter: 2016Q1

REPORT INFORMATION
  Report Type: Spontaneous
  Country: IE (occurrence: IE)
  Receive Date: 20160310
  Receipt Date: 20160310
  Transmission Date: 20160526
  Serious: Yes (Hospitalization)
  Sender: FDA-Public Use
  Company Number: IE-BAXTER-2016BAX010376

PATIENT
  Age: 26 Year
  Sex: Female

DRUGS (5)
  1. CUBICIN [Suspect]
     Active Substance: DAPTOMYCIN
     Indication: PRODUCT USED FOR UNKNOWN INDICATION
     Route: 042
     Dates: start: 20160222, end: 20160227
  2. SODIUM CHLORIDE 0.9% W/V INTRAVENOUS INFUSION BP [Suspect]
     Active Substance: SODIUM CHLORIDE
     Dosage: IN MEROPENEM
     Route: 042
     Dates: start: 20160222, end: 20160228
  3. SODIUM CHLORIDE 0.9% W/V INTRAVENOUS INFUSION BP [Suspect]
     Active Substance: SODIUM CHLORIDE
     Indication: MEDICATION DILUTION
     Dosage: IN DAPTOMYCIN
     Route: 042
     Dates: start: 20160222, end: 20160227
  4. MERONEM [Suspect]
     Active Substance: MEROPENEM
     Indication: PRODUCT USED FOR UNKNOWN INDICATION
     Route: 042
     Dates: start: 20160222, end: 20160228
  5. WATER FOR INJECTION [Suspect]
     Active Substance: WATER
     Indication: MEDICATION DILUTION
     Dosage: IN MEROPENEM
     Route: 042
     Dates: start: 20160222, end: 20160228

REACTIONS (2)
  - Rash [Unknown]
  - Neutropenia [Unknown]

NARRATIVE: CASE EVENT DATE: 20160227
